FAERS Safety Report 20604166 (Version 2)
Quarter: 2022Q2

REPORT INFORMATION
  Report Type: Spontaneous
  Country: CN (occurrence: None)
  Receive Date: 20220316
  Receipt Date: 20220414
  Transmission Date: 20220721
  Serious: Yes (Hospitalization, Other)
  Sender: FDA-Public Use
  Company Number: 2022A110623

PATIENT
  Age: 43 Year
  Sex: Male
  Weight: 80 kg

DRUGS (9)
  1. DAPAGLIFLOZIN [Suspect]
     Active Substance: DAPAGLIFLOZIN
     Indication: Type 2 diabetes mellitus
     Dosage: 10MG, PO, QD. AFTER TAKING IT FOR ABOUT 2 WEEKS,
     Route: 048
     Dates: start: 20210322, end: 20210405
  2. DAPAGLIFLOZIN [Suspect]
     Active Substance: DAPAGLIFLOZIN
     Indication: Type 2 diabetes mellitus
     Route: 048
     Dates: start: 20210709, end: 20210716
  3. METFORMIN [Concomitant]
     Active Substance: METFORMIN HYDROCHLORIDE
     Dosage: 1G TID. AFTER 2 DAYS,
     Route: 065
  4. DIOSMIN [Concomitant]
     Active Substance: DIOSMIN
     Dosage: GIVEN 0.9G, PO, BID
     Route: 048
  5. EPALRESTAT [Concomitant]
     Active Substance: EPALRESTAT
     Dosage: 50MG, PO, TID
     Route: 048
  6. GLIQUIDONE [Concomitant]
     Active Substance: GLIQUIDONE
     Dosage: TABLETS 60MG, PO, TID
     Route: 048
  7. ACARBOSE [Concomitant]
     Active Substance: ACARBOSE
     Indication: Type 2 diabetes mellitus
     Dosage: 100MG, TID
     Route: 048
  8. PIOGLITAZONE [Concomitant]
     Active Substance: PIOGLITAZONE
     Dosage: 30MG, PO, QD
     Route: 048
  9. GLUCOBAY [Concomitant]
     Active Substance: ACARBOSE
     Indication: Type 2 diabetes mellitus
     Dosage: 50MG/TABLET
     Route: 048

REACTIONS (2)
  - Retinal haemorrhage [Recovering/Resolving]
  - Diabetic retinopathy [Unknown]
